FAERS Safety Report 4269382-8 (Version None)
Quarter: 2004Q1

REPORT INFORMATION
  Report Type: 
  Country: None (occurrence: None)
  Receive Date: 20040113
  Receipt Date: 20040108
  Transmission Date: 20041129
  Serious: Yes (Hospitalization)
  Sender: FDA-Public Use
  Company Number: WAES 0401USA00583

PATIENT
  Age: 74 Year
  Sex: Female

DRUGS (5)
  1. [THERAPY UNSPECIFIED] [Concomitant]
  2. HYDRODIURIL [Concomitant]
  3. LEVOTHROID [Concomitant]
  4. COZAAR [Suspect]
  5. COZAAR [Suspect]

REACTIONS (6)
  - ARTHRALGIA [None]
  - DIVERTICULITIS [None]
  - DRUG INEFFECTIVE [None]
  - NECK PAIN [None]
  - OEDEMA PERIPHERAL [None]
  - PAIN IN EXTREMITY [None]
